FAERS Safety Report 8911131 (Version 1)
Quarter: 2012Q4

REPORT INFORMATION
  Report Type: 
  Country: TR (occurrence: TR)
  Receive Date: 20121116
  Receipt Date: 20121116
  Transmission Date: 20130627
  Serious: Yes (Other)
  Sender: FDA-Public Use
  Company Number: TR-AMGEN-TURSP2012050096

PATIENT
  Age: 48 Year
  Sex: Female

DRUGS (1)
  1. ENBREL [Suspect]
     Indication: ANKYLOSING SPONDYLITIS
     Dosage: 50 mg, weekly
     Route: 058
     Dates: start: 201105, end: 201205

REACTIONS (5)
  - Fear [Not Recovered/Not Resolved]
  - Back pain [Not Recovered/Not Resolved]
  - Paralysis [Unknown]
  - Therapeutic response unexpected [Unknown]
  - Musculoskeletal chest pain [Not Recovered/Not Resolved]
